FAERS Safety Report 10274273 (Version 4)
Quarter: 2015Q3

REPORT INFORMATION
  Report Type: Spontaneous
  Country: US (occurrence: US)
  Receive Date: 20140702
  Receipt Date: 20150922
  Transmission Date: 20151125
  Serious: Yes (Other)
  Sender: FDA-Public Use
  Company Number: US-PFIZER INC-2014179318

PATIENT
  Age: 66 Year
  Sex: Female

DRUGS (10)
  1. EFFEXOR XR [Suspect]
     Active Substance: VENLAFAXINE HYDROCHLORIDE
     Indication: FIBROMYALGIA
     Dosage: 300 MG, DAILY (150MG 2 A DAY) EVERY MORNING
     Dates: start: 1992
  2. NEXIUM [Concomitant]
     Active Substance: ESOMEPRAZOLE MAGNESIUM
     Indication: IRRITABLE BOWEL SYNDROME
     Dosage: UNK UNK, 2X/DAY
  3. KLONOPIN [Concomitant]
     Active Substance: CLONAZEPAM
     Dosage: 1 MG, 1X/DAY (0.5 MG 2 AT BEDTIME)
  4. AMBIEN [Concomitant]
     Active Substance: ZOLPIDEM TARTRATE
     Dosage: 10 MG, UNK
  5. MS CONTIN [Concomitant]
     Active Substance: MORPHINE SULFATE
     Indication: PAIN
     Dosage: UNK
  6. REMERON [Concomitant]
     Active Substance: MIRTAZAPINE
     Dosage: 30 MG, 1X/DAY, (IN THE EVENING)
  7. IMITREX [Concomitant]
     Active Substance: SUMATRIPTAN\SUMATRIPTAN SUCCINATE
     Indication: MIGRAINE
     Dosage: UNK
  8. FIORICET [Concomitant]
     Active Substance: ACETAMINOPHEN\BUTALBITAL\CAFFEINE
     Indication: MIGRAINE
     Dosage: UNK
  9. EFFEXOR XR [Suspect]
     Active Substance: VENLAFAXINE HYDROCHLORIDE
     Indication: DEPRESSION
  10. EFFEXOR XR [Suspect]
     Active Substance: VENLAFAXINE HYDROCHLORIDE
     Indication: MIGRAINE

REACTIONS (13)
  - Fibromyalgia [Unknown]
  - Nausea [Unknown]
  - Depression [Unknown]
  - Myofascial pain syndrome [Unknown]
  - Bedridden [Unknown]
  - Anxiety [Unknown]
  - Malaise [Unknown]
  - Product use issue [Unknown]
  - Migraine [Unknown]
  - Drug withdrawal syndrome [Unknown]
  - Pain [Unknown]
  - Fatigue [Unknown]
  - Condition aggravated [Unknown]
